FAERS Safety Report 4744172-8 (Version None)
Quarter: 2005Q3

REPORT INFORMATION
  Report Type: 
  Country: None (occurrence: None)
  Receive Date: 20050809
  Receipt Date: 20050726
  Transmission Date: 20060218
  Serious: Yes (Congenital Anomaly)
  Sender: FDA-Public Use
  Company Number: 8011167

PATIENT

DRUGS (3)
  1. KEPPRA [Suspect]
     Indication: EPILEPSY
     Dosage: TRP
     Dates: start: 20050303, end: 20050701
  2. KEPPRA [Suspect]
     Indication: EPILEPSY
     Dosage: TRP
     Dates: start: 20050501
  3. FOLATE [Concomitant]

REACTIONS (2)
  - CONGENITAL CHOROID PLEXUS CYST [None]
  - DRUG EXPOSURE DURING PREGNANCY [None]
